FAERS Safety Report 9049791 (Version 2)
Quarter: 2013Q4

REPORT INFORMATION
  Report Type: Spontaneous
  Country: GB (occurrence: GB)
  Receive Date: 20130205
  Receipt Date: 20131004
  Transmission Date: 20140711
  Serious: Yes (Life-Threatening, Hospitalization, Disabling, Other)
  Sender: FDA-Public Use
  Company Number: GB-PFIZER INC-2013044233

PATIENT
  Age: 62 Year
  Sex: Female
  Weight: 75 kg

DRUGS (15)
  1. FLUOXETINE HCL [Suspect]
     Indication: AGITATION
     Dosage: UNK
     Route: 048
  2. FLUOXETINE HCL [Suspect]
     Indication: DEPRESSION
     Dosage: 20 MG
     Route: 048
     Dates: start: 20130107
  3. FLUOXETINE HCL [Suspect]
     Indication: PSYCHOTIC DISORDER
  4. PHENYTOIN [Suspect]
     Dosage: UNK
     Route: 065
  5. CALCEOS [Concomitant]
     Dosage: UNK
     Route: 065
  6. CHLORPHENAMINE [Concomitant]
     Dosage: UNK
     Route: 065
  7. CLOBAZAM [Concomitant]
     Dosage: UNK
     Route: 065
  8. FERROUS FUMARATE [Concomitant]
     Dosage: UNK
     Route: 065
  9. HALOPERIDOL [Concomitant]
     Dosage: UNK
     Route: 065
  10. LEVOTHYROXINE [Concomitant]
     Dosage: UNK
     Route: 065
  11. OLANZAPINE [Concomitant]
     Dosage: UNK
     Route: 065
  12. PROCYCLIDINE [Concomitant]
     Dosage: UNK
     Route: 065
  13. SENNA [Concomitant]
     Dosage: UNK
     Route: 065
  14. TOPIRAMATE [Concomitant]
     Dosage: UNK
     Route: 065
  15. PARACETAMOL [Concomitant]
     Dosage: UNK
     Route: 065

REACTIONS (4)
  - Confusional state [Unknown]
  - Unresponsive to stimuli [Unknown]
  - Coma scale abnormal [Unknown]
  - Anticonvulsant drug level increased [Not Recovered/Not Resolved]
